FAERS Safety Report 7981814 (Version 2)
Quarter: 2012Q4

REPORT INFORMATION
  Report Type: 
  Country: CA (occurrence: CA)
  Receive Date: 20110608
  Receipt Date: 20121107
  Transmission Date: 20130627
  Serious: Yes (Other)
  Sender: FDA-Public Use
  Company Number: PHMT2007CA00459

PATIENT
  Sex: Female

DRUGS (1)
  1. SANDOSTATIN LAR [Suspect]
     Indication: NEUROENDOCRINE TUMOUR
     Dosage: 30 mg, once a month
     Route: 030
     Dates: start: 20050815

REACTIONS (11)
  - Wrist fracture [Unknown]
  - Hypotension [Unknown]
  - Alopecia [Unknown]
  - Weight increased [Unknown]
  - Solar lentigo [Unknown]
  - Diarrhoea [Unknown]
  - Nausea [Unknown]
  - Hyperglycaemia [Unknown]
  - Blood glucose increased [Unknown]
  - Fatigue [Unknown]
  - Decreased appetite [Unknown]
